FAERS Safety Report 5695300-1 (Version None)
Quarter: 2008Q2

REPORT INFORMATION
  Report Type: 
  Country: None (occurrence: None)
  Receive Date: 20080404
  Receipt Date: 20080324
  Transmission Date: 20081010
  Serious: Yes (Other)
  Sender: FDA-Public Use
  Company Number: TR-PFIZER INC-2008027948

PATIENT
  Age: 24 Year
  Sex: Female

DRUGS (1)
  1. SERTRALINE [Suspect]

REACTIONS (1)
  - PUPILS UNEQUAL [None]
